FAERS Safety Report 10873721 (Version 3)
Quarter: 2016Q4

REPORT INFORMATION
  Report Type: Report from Study
  Country: GR (occurrence: GR)
  Receive Date: 20150227
  Receipt Date: 20161207
  Transmission Date: 20170206
  Serious: Yes (Death, Hospitalization, Other)
  Sender: FDA-Public Use
  Company Number: GR-JNJFOC-20150106814

PATIENT
  Age: 55 Year
  Sex: Male

DRUGS (5)
  1. METHOTREXATE. [Suspect]
     Active Substance: METHOTREXATE
     Indication: RHEUMATOID ARTHRITIS
     Dosage: 17.5 (UNIT UNSPECIFIED)
     Route: 048
     Dates: start: 201102, end: 201501
  2. DIANICOTYL [Concomitant]
     Indication: ANTIBIOTIC PROPHYLAXIS
     Dosage: 300 (UNSPECIFIED UNIT)
     Route: 048
     Dates: start: 201407
  3. SIMPONI [Suspect]
     Active Substance: GOLIMUMAB
     Indication: RHEUMATOID ARTHRITIS
     Route: 058
     Dates: start: 20140812, end: 20150109
  4. FILICINE [Concomitant]
     Indication: RHEUMATOID ARTHRITIS
     Dosage: 5 (UNITS UNSPECIFIED)
     Route: 048
     Dates: start: 201102
  5. MEDROL [Concomitant]
     Active Substance: METHYLPREDNISOLONE
     Indication: RHEUMATOID ARTHRITIS
     Dosage: DOSE ILLEGIBLE
     Route: 048
     Dates: start: 201407, end: 20150206

REACTIONS (9)
  - Polyuria [Fatal]
  - Mass [Unknown]
  - Thrombocytopenia [Unknown]
  - Pain [Fatal]
  - Lung cancer metastatic [Fatal]
  - Back pain [Fatal]
  - Hypercalcaemia [Fatal]
  - Renal failure [Not Recovered/Not Resolved]
  - Polydipsia [Not Recovered/Not Resolved]

NARRATIVE: CASE EVENT DATE: 20141229
